FAERS Safety Report 8382479 (Version 2)
Quarter: 2013Q1

REPORT INFORMATION
  Report Type: Spontaneous
  Country: US (occurrence: US)
  Receive Date: 20120201
  Receipt Date: 20130318
  Transmission Date: 20140127
  Serious: No
  Sender: FDA-Public Use
  Company Number: PHEH2012US002689

PATIENT
  Sex: Male

DRUGS (16)
  1. TASIGNA [Suspect]
     Indication: CHRONIC MYELOID LEUKAEMIA
     Dosage: 150 MG, BID
     Route: 048
     Dates: end: 20120129
  2. PRILOSEC [Suspect]
  3. LISINOPRIL [Concomitant]
     Indication: HYPERTENSION
  4. LOVAZA [Concomitant]
     Indication: BLOOD CHOLESTEROL
  5. VITAMIN D [Concomitant]
  6. MULTIVITAMIN [Concomitant]
  7. ASPIRIN [Concomitant]
  8. ALLOPURINOL [Concomitant]
  9. METFORMIN [Concomitant]
  10. GLIPIZIDE [Concomitant]
  11. LEXAPRO [Concomitant]
  12. OMEPRAZOLE [Concomitant]
  13. TRICOR [Concomitant]
  14. DICYCLOMINE [Concomitant]
  15. FLUOCINONIDE [Concomitant]
  16. ALFUZOSIN [Concomitant]

REACTIONS (3)
  - Skin disorder [Unknown]
  - Rash pruritic [Unknown]
  - Rash erythematous [Unknown]
